FAERS Safety Report 26158337 (Version 1)
Quarter: 2025Q4

REPORT INFORMATION
  Report Type: Report from Study
  Country: EU (occurrence: EU)
  Receive Date: 20251215
  Receipt Date: 20251215
  Transmission Date: 20260117
  Serious: Yes (Other)
  Sender: MYLAN
  Company Number: EU-MYLANLABS-2025M1106273

PATIENT
  Sex: Female

DRUGS (4)
  1. GLATIRAMER ACETATE [Suspect]
     Active Substance: GLATIRAMER ACETATE
     Indication: Multiple sclerosis
     Dosage: UNK, 3XW (40 MILLIGRAM PER MILLILITRE, 3XW)
     Dates: start: 20221201, end: 20251107
  2. GLATIRAMER ACETATE [Suspect]
     Active Substance: GLATIRAMER ACETATE
     Dosage: UNK, 3XW (40 MILLIGRAM PER MILLILITRE, 3XW)
     Route: 058
     Dates: start: 20221201, end: 20251107
  3. GLATIRAMER ACETATE [Suspect]
     Active Substance: GLATIRAMER ACETATE
     Dosage: UNK, 3XW (40 MILLIGRAM PER MILLILITRE, 3XW)
     Route: 058
     Dates: start: 20221201, end: 20251107
  4. GLATIRAMER ACETATE [Suspect]
     Active Substance: GLATIRAMER ACETATE
     Dosage: UNK, 3XW (40 MILLIGRAM PER MILLILITRE, 3XW)
     Dates: start: 20221201, end: 20251107

REACTIONS (1)
  - Multiple sclerosis [Unknown]

NARRATIVE: CASE EVENT DATE: 20251107
